FAERS Safety Report 6034625-7 (Version None)
Quarter: 2009Q1

REPORT INFORMATION
  Report Type: 
  Country: None (occurrence: None)
  Receive Date: 20090109
  Receipt Date: 20090109
  Transmission Date: 20090719
  Serious: Yes (Other)
  Sender: FDA-Public Use
  Company Number: None

PATIENT
  Age: 24 Year
  Sex: Female
  Weight: 58.9676 kg

DRUGS (2)
  1. CHANTIX [Suspect]
     Indication: SMOKING CESSATION THERAPY
     Dosage: 1 MG. TABLET 2 TIMES/DAY PO
     Route: 048
     Dates: start: 20080112, end: 20080212
  2. CHANTIX [Suspect]
     Indication: SMOKING CESSATION THERAPY
     Dosage: 1 MG. TABLET 2 TIMES/DAY PO
     Route: 048
     Dates: start: 20080712, end: 20080912

REACTIONS (5)
  - ANTISOCIAL BEHAVIOUR [None]
  - DEPRESSION [None]
  - IRRITABILITY [None]
  - SOCIAL AVOIDANT BEHAVIOUR [None]
  - SUICIDAL IDEATION [None]
